FAERS Safety Report 6574591-9 (Version None)
Quarter: 2010Q1

REPORT INFORMATION
  Report Type: 
  Country: None (occurrence: None)
  Receive Date: 20100209
  Receipt Date: 20100128
  Transmission Date: 20100710
  Serious: Yes (Life-Threatening, Other)
  Sender: FDA-Public Use
  Company Number: US-TYCO HEALTHCARE/MALLINCKRODT-T201000565

PATIENT
  Sex: Female

DRUGS (7)
  1. RESTORIL [Suspect]
     Indication: SLEEP DISORDER
     Dosage: UNK
  2. CHANTIX [Suspect]
     Indication: SMOKING CESSATION THERAPY
     Dosage: 12.5 MG, QD
     Dates: start: 20090501
  3. XANAX [Suspect]
     Indication: SLEEP DISORDER
     Dosage: 3-4 PILLS PER DAY AS NEEDED
  4. TYLENOL PM                         /01088101/ [Suspect]
     Indication: SLEEP DISORDER
     Dosage: UNK
  5. LOPRESSOR [Suspect]
     Dosage: 12.5 MG, QD
  6. PAXIL [Concomitant]
     Dosage: UNK
  7. ASPIRIN [Concomitant]
     Dosage: UNK

REACTIONS (5)
  - BLOOD CHOLESTEROL INCREASED [None]
  - FALL [None]
  - MYOCARDIAL INFARCTION [None]
  - SLEEP DISORDER [None]
  - UPPER LIMB FRACTURE [None]
